FAERS Safety Report 19660003 (Version 2)
Quarter: 2021Q3

REPORT INFORMATION
  Report Type: Spontaneous
  Country: US (occurrence: US)
  Receive Date: 20210805
  Receipt Date: 20210829
  Transmission Date: 20211014
  Serious: Yes (Other)
  Sender: FDA-Public Use
  Company Number: US-JNJFOC-20210753176

PATIENT
  Age: 21 Year
  Sex: Female

DRUGS (3)
  1. ZOLOFT [Concomitant]
     Active Substance: SERTRALINE HYDROCHLORIDE
     Indication: GENERALISED ANXIETY DISORDER
     Route: 065
     Dates: start: 20190112
  2. TRI?ESTARYLLA [Concomitant]
     Active Substance: ETHINYL ESTRADIOL\NORGESTIMATE
     Indication: CONTRACEPTION
     Route: 065
     Dates: start: 20180724
  3. NEUTROGENA ULTRA SHEER BODY MIST SUNSCREEN BROAD SPECTRUM 70 (AVO\HOM\OCTI\OCTO) [Suspect]
     Active Substance: AVOBENZONE\HOMOSALATE\OCTISALATE\OCTOCRYLENE
     Indication: PROPHYLAXIS AGAINST SOLAR RADIATION
     Dosage: PATIENT USED THE SUNSCREEN IN A SHADED AREA, RUBBED IT INTO SKIN, WAITED 20 MINUTES BEFORE SUN EXPOS
     Route: 061
     Dates: start: 20210711, end: 2021

REACTIONS (2)
  - Sunburn [Recovering/Resolving]
  - Burns third degree [Recovering/Resolving]

NARRATIVE: CASE EVENT DATE: 20210711
